FAERS Safety Report 4803635-7 (Version None)
Quarter: 2005Q4

REPORT INFORMATION
  Report Type: 
  Country: None (occurrence: None)
  Receive Date: 20051014
  Receipt Date: 20051006
  Transmission Date: 20060501
  Serious: Yes (Hospitalization)
  Sender: FDA-Public Use
  Company Number: 2005136673

PATIENT
  Sex: Female
  Weight: 53 kg

DRUGS (2)
  1. LYRICA [Suspect]
     Indication: HERPES ZOSTER
     Dosage: 75 MG, ORAL
     Route: 048
     Dates: start: 20050921, end: 20050923
  2. LYRICA [Suspect]
     Indication: POST HERPETIC NEURALGIA
     Dosage: 75 MG, ORAL
     Route: 048
     Dates: start: 20050921, end: 20050923

REACTIONS (4)
  - CONTUSION [None]
  - DYSARTHRIA [None]
  - FALL [None]
  - INSOMNIA [None]
